FAERS Safety Report 5062723-3 (Version None)
Quarter: 2006Q3

REPORT INFORMATION
  Report Type: 
  Country: None (occurrence: None)
  Receive Date: 20060726
  Receipt Date: 20060726
  Transmission Date: 20061208
  Serious: Yes (Other)
  Sender: FDA-Public Use
  Company Number: None

PATIENT
  Age: 22 Year
  Sex: Female
  Weight: 65.318 kg

DRUGS (2)
  1. LITHIUM CITRATE [Suspect]
     Indication: BIPOLAR DISORDER
     Dosage: 450MG   TWICE DAILY   PO
     Route: 048
     Dates: start: 20051101, end: 20060701
  2. LITHIUM [Concomitant]

REACTIONS (20)
  - ACNE [None]
  - ANXIETY [None]
  - ARTHROPATHY [None]
  - CHEST PAIN [None]
  - CONDITION AGGRAVATED [None]
  - DENTAL CARIES [None]
  - DEPRESSION [None]
  - DRUG INEFFECTIVE [None]
  - DRUG LEVEL CHANGED [None]
  - DYSPNOEA [None]
  - FATIGUE [None]
  - GENERAL PHYSICAL HEALTH DETERIORATION [None]
  - HEART RATE INCREASED [None]
  - HYPERHIDROSIS [None]
  - LOCALISED INFECTION [None]
  - PANIC ATTACK [None]
  - PHARMACEUTICAL PRODUCT COMPLAINT [None]
  - SEASONAL AFFECTIVE DISORDER [None]
  - SLEEP DISORDER [None]
  - TONSILLITIS STREPTOCOCCAL [None]
